FAERS Safety Report 15676889 (Version 1)
Quarter: 2018Q4

REPORT INFORMATION
  Report Type: Spontaneous
  Country: US (occurrence: US)
  Receive Date: 20181130
  Receipt Date: 20181130
  Transmission Date: 20190205
  Serious: Yes (Other)
  Sender: FDA-Public Use
  Company Number: US-FRESENIUS KABI-FK201812120

PATIENT
  Age: 55 Year
  Sex: Male

DRUGS (2)
  1. GANCICLOVIR FOR INJECTION (MANUFACTURER UNKNOWN) [Suspect]
     Active Substance: GANCICLOVIR
     Indication: CYTOMEGALOVIRUS CHORIORETINITIS
     Dosage: INDUCTION
     Route: 042
  2. GANCICLOVIR FOR INJECTION (MANUFACTURER UNKNOWN) [Suspect]
     Active Substance: GANCICLOVIR
     Dosage: MAINTENANCE
     Route: 042

REACTIONS (2)
  - Infusion site extravasation [Recovered/Resolved]
  - Blister [Recovered/Resolved with Sequelae]
